FAERS Safety Report 22238699 (Version 1)
Quarter: 2023Q2

REPORT INFORMATION
  Report Type: Spontaneous
  Country: US (occurrence: None)
  Receive Date: 20230420
  Receipt Date: 20230420
  Transmission Date: 20230722
  Serious: Yes (Hospitalization)
  Sender: FDA-Public Use
  Company Number: None

PATIENT
  Age: 54 Year
  Sex: Female
  Weight: 108.6 kg

DRUGS (1)
  1. AXICABTAGENE CILOLEUCEL [Suspect]
     Active Substance: AXICABTAGENE CILOLEUCEL
     Indication: Diffuse large B-cell lymphoma
     Dosage: 1 DF ONCE INTRAVENOUS?
     Route: 042
     Dates: start: 20230301, end: 20230301

REACTIONS (4)
  - Cytokine release syndrome [None]
  - Pyrexia [None]
  - Immune effector cell-associated neurotoxicity syndrome [None]
  - Seizure [None]

NARRATIVE: CASE EVENT DATE: 20230306
